FAERS Safety Report 5616218-6 (Version None)
Quarter: 2008Q1

REPORT INFORMATION
  Report Type: 
  Country: None (occurrence: None)
  Receive Date: 20080204
  Receipt Date: 20080118
  Transmission Date: 20080703
  Serious: No
  Sender: FDA-Public Use
  Company Number: 8024408

PATIENT
  Age: 7 Year
  Sex: Male
  Weight: 29.5 kg

DRUGS (4)
  1. EQUASYM [Suspect]
     Indication: ATTENTION DEFICIT/HYPERACTIVITY DISORDER
     Dosage: 30 MG 1/D
     Dates: start: 20061228, end: 20070124
  2. EQUASYM [Suspect]
     Indication: ATTENTION DEFICIT/HYPERACTIVITY DISORDER
     Dosage: 35 MG 1/D
     Dates: start: 20070125
  3. MEDIKINET [Concomitant]
  4. CONCERTA [Concomitant]

REACTIONS (5)
  - CONDITION AGGRAVATED [None]
  - FATIGUE [None]
  - HYPOTONIA [None]
  - MALAISE [None]
  - TIC [None]
